FAERS Safety Report 21722830 (Version 1)
Quarter: 2022Q4

REPORT INFORMATION
  Report Type: Spontaneous
  Country: US (occurrence: None)
  Receive Date: 20221212
  Receipt Date: 20221212
  Transmission Date: 20230112
  Serious: Yes (Other)
  Sender: FDA-Public Use
  Company Number: None

PATIENT
  Age: 47 Year
  Sex: Female

DRUGS (8)
  1. HUMIRA [Suspect]
     Active Substance: ADALIMUMAB
     Indication: Psoriatic arthropathy
     Dosage: FREQUENCY : EVERY OTHER WEEK;?
     Route: 058
     Dates: start: 20221111
  2. CYMBALTA [Concomitant]
     Active Substance: DULOXETINE HYDROCHLORIDE
     Dates: start: 20221111
  3. Lisinopril 10 Tablets [Concomitant]
     Dates: start: 20221111
  4. Atrovent HFA Oral Inhaler [Concomitant]
     Dates: start: 20221111
  5. Singulair 10mg Tablets [Concomitant]
     Dates: start: 20221111
  6. Zyrtec 10mg Tablets OTC [Concomitant]
     Dates: start: 20221111
  7. Abilify 10mg Tablets [Concomitant]
     Dates: start: 20221111
  8. TRAZODONE [Concomitant]
     Active Substance: TRAZODONE HYDROCHLORIDE
     Dates: start: 20221111

REACTIONS (4)
  - Therapy non-responder [None]
  - Pain [None]
  - Loss of personal independence in daily activities [None]
  - Therapeutic product effect delayed [None]

NARRATIVE: CASE EVENT DATE: 20221212
